FAERS Safety Report 6533241-8 (Version None)
Quarter: 2010Q1

REPORT INFORMATION
  Report Type: 
  Country: None (occurrence: None)
  Receive Date: 20100111
  Receipt Date: 20100107
  Transmission Date: 20100710
  Serious: Yes (Life-Threatening)
  Sender: FDA-Public Use
  Company Number: US-JNJFOC-20100101998

PATIENT
  Age: 33 Year
  Sex: Female

DRUGS (2)
  1. ULTRAM ER [Suspect]
     Indication: DRUG USE FOR UNKNOWN INDICATION
  2. ANTICONVULSANT [Suspect]
     Indication: DRUG USE FOR UNKNOWN INDICATION

REACTIONS (3)
  - CONVULSION [None]
  - MUSCLE TWITCHING [None]
  - UNRESPONSIVE TO STIMULI [None]
